FAERS Safety Report 4365019-8 (Version None)
Quarter: 2004Q2

REPORT INFORMATION
  Report Type: 
  Country: None (occurrence: None)
  Receive Date: 20040521
  Receipt Date: 20040510
  Transmission Date: 20050107
  Serious: Yes (Hospitalization)
  Sender: FDA-Public Use
  Company Number: 2004031678

PATIENT
  Age: 72 Year
  Sex: Male

DRUGS (1)
  1. CARDURA [Suspect]
     Indication: ILL-DEFINED DISORDER
     Dosage: 6 MG (6 MG, 1 IN 1 D), ORAL
     Route: 048

REACTIONS (2)
  - CORONARY ARTERY DISEASE [None]
  - ORTHOSTATIC HYPOTENSION [None]
